FAERS Safety Report 6404198-5 (Version None)
Quarter: 2009Q4

REPORT INFORMATION
  Report Type: 
  Country: None (occurrence: None)
  Receive Date: 20091016
  Receipt Date: 20091005
  Transmission Date: 20100525
  Serious: Yes (Other)
  Sender: FDA-Public Use
  Company Number: BR-PFIZER INC-2009202441

PATIENT

DRUGS (1)
  1. DETRUSITOL [Suspect]
     Dosage: UNK

REACTIONS (5)
  - DRUG INEFFECTIVE [None]
  - FALL [None]
  - GAIT DISTURBANCE [None]
  - INTERNAL FIXATION OF FRACTURE [None]
  - NEOPLASM MALIGNANT [None]
